FAERS Safety Report 15115050 (Version 1)
Quarter: 2018Q3

REPORT INFORMATION
  Report Type: Report from Study
  Country: US (occurrence: US)
  Receive Date: 20180706
  Receipt Date: 20180706
  Transmission Date: 20181010
  Serious: Yes (Other)
  Sender: FDA-Public Use
  Company Number: US-ALLERGAN-1830099US

PATIENT
  Age: 49 Year
  Sex: Female

DRUGS (4)
  1. BOTULINUM TOXIN TYPE A ? GENERAL (9060X) [Suspect]
     Active Substance: BOTULINUM TOXIN TYPE A
     Dosage: UNK, SINGLE
     Route: 030
     Dates: start: 201708, end: 201708
  2. BOTULINUM TOXIN TYPE A ? GENERAL (9060X) [Suspect]
     Active Substance: BOTULINUM TOXIN TYPE A
     Dosage: UNK
     Route: 030
  3. BOTULINUM TOXIN TYPE A ? GENERAL (9060X) [Suspect]
     Active Substance: BOTULINUM TOXIN TYPE A
     Indication: NEURALGIA
     Dosage: UNK, SINGLE
     Route: 030
     Dates: start: 201702, end: 201702
  4. BOTULINUM TOXIN TYPE A ? GENERAL (9060X) [Suspect]
     Active Substance: BOTULINUM TOXIN TYPE A
     Indication: HEADACHE
     Dosage: UNK, SINGLE
     Route: 030
     Dates: start: 20170718, end: 20170718

REACTIONS (21)
  - Sensation of foreign body [Recovered/Resolved]
  - Ocular discomfort [Recovered/Resolved]
  - Eye pain [Recovered/Resolved]
  - Oral pain [Unknown]
  - Facial pain [Recovered/Resolved]
  - Pruritus [Recovered/Resolved]
  - Neck pain [Recovered/Resolved]
  - Muscle spasms [Not Recovered/Not Resolved]
  - Vertigo [Recovered/Resolved]
  - Drug ineffective [Unknown]
  - Injection site haemorrhage [Recovered/Resolved]
  - Pain [Not Recovered/Not Resolved]
  - Off label use [Unknown]
  - Eye irritation [Recovered/Resolved]
  - Injection site swelling [Recovered/Resolved]
  - Tenderness [Recovered/Resolved]
  - Tinnitus [Recovered/Resolved]
  - Insomnia [Recovered/Resolved]
  - Injection site hypoaesthesia [Recovered/Resolved]
  - Eyelids pruritus [Recovered/Resolved]
  - Headache [Not Recovered/Not Resolved]

NARRATIVE: CASE EVENT DATE: 20170622
